FAERS Safety Report 10217628 (Version 1)
Quarter: 2014Q2

REPORT INFORMATION
  Report Type: Report from Study
  Country: PL (occurrence: PL)
  Receive Date: 20140604
  Receipt Date: 20140604
  Transmission Date: 20141212
  Serious: Yes (Death)
  Sender: FDA-Public Use
  Company Number: PL-BAXTER-2014BAX028630

PATIENT
  Sex: 0

DRUGS (4)
  1. HOLOXAN [Suspect]
     Indication: EWING^S SARCOMA
     Dosage: 9 G/M2; 6 CYCLES
     Route: 065
  2. VINCRISTINE [Suspect]
     Indication: EWING^S SARCOMA
     Dosage: 6 CYCLES
     Route: 065
  3. DOXORUBICIN [Suspect]
     Indication: EWING^S SARCOMA
     Dosage: 6 CYCLES
     Route: 065
  4. ETOPOSIDE [Suspect]
     Indication: EWING^S SARCOMA
     Dosage: 6 CYCLES
     Route: 065

REACTIONS (1)
  - Disease progression [Fatal]
